FAERS Safety Report 10695561 (Version 1)
Quarter: 2014Q4

REPORT INFORMATION
  Report Type: Spontaneous
  Country: US (occurrence: None)
  Receive Date: 20141223
  Receipt Date: 20141223
  Transmission Date: 20150529
  Serious: No
  Sender: FDA-Public Use
  Company Number: 1000072090

PATIENT
  Sex: Male

DRUGS (10)
  1. FLUTICASONE PROPIONATE. [Concomitant]
     Active Substance: FLUTICASONE PROPIONATE
  2. MVI (VITAMINS NOS) [Concomitant]
  3. METOPROLOL [Concomitant]
     Active Substance: METOPROLOL
  4. DILTIAZEM (DILTIAZEM HYDROCHLORIDE) (DILTIAZEM HYDROCHLORIDE) [Concomitant]
     Active Substance: DILTIAZEM
  5. LINZESS [Suspect]
     Active Substance: LINACLOTIDE
     Indication: ABDOMINAL PAIN UPPER
     Route: 048
     Dates: start: 201410
  6. DEXILANT [Concomitant]
     Active Substance: DEXLANSOPRAZOLE
  7. AUGMENTIN [Suspect]
     Active Substance: AMOXICILLIN\CLAVULANATE POTASSIUM
     Indication: ANIMAL BITE
     Dates: start: 20141028
  8. ASMANEX (MOMETASONE FUROATE) (MOMETASONE FUROATE) [Concomitant]
  9. ELIQUIS (APIXABAN) (5 MILLIGRAM) (APIXABAN) [Concomitant]
  10. ATORVASTATIN CALCIUM. [Concomitant]
     Active Substance: ATORVASTATIN CALCIUM

REACTIONS (2)
  - Diarrhoea [None]
  - Off label use [None]

NARRATIVE: CASE EVENT DATE: 201410
